FAERS Safety Report 5722515-6 (Version None)
Quarter: 2008Q2

REPORT INFORMATION
  Report Type: 
  Country: None (occurrence: None)
  Receive Date: 20080429
  Receipt Date: 20071011
  Transmission Date: 20081010
  Serious: Yes (Other)
  Sender: FDA-Public Use
  Company Number: US-ASTRAZENECA-2007UW23655

PATIENT
  Sex: Male

DRUGS (6)
  1. NEXIUM [Suspect]
  2. DIOVAN [Concomitant]
  3. SPIRIVA [Concomitant]
  4. ADVAIR HFA [Concomitant]
  5. ASPIRIN [Concomitant]
  6. TRIGLIDE [Concomitant]

REACTIONS (1)
  - PHOTOSENSITIVITY REACTION [None]
